FAERS Safety Report 23642650 (Version 1)
Quarter: 2024Q1

REPORT INFORMATION
  Report Type: Report from Study
  Country: DO (occurrence: DO)
  Receive Date: 20240318
  Receipt Date: 20240318
  Transmission Date: 20240409
  Serious: Yes (Other)
  Sender: FDA-Public Use
  Company Number: DO-MYLANLABS-2024M1025107

PATIENT
  Sex: Female
  Weight: 68 kg

DRUGS (1)
  1. LIPITOR [Suspect]
     Active Substance: ATORVASTATIN CALCIUM
     Indication: Hypercholesterolaemia
     Dosage: 40 MILLIGRAM, QD
     Route: 048

REACTIONS (2)
  - Cerebrovascular accident [Not Recovered/Not Resolved]
  - Dementia [Not Recovered/Not Resolved]
